FAERS Safety Report 5479199-4 (Version None)
Quarter: 2007Q4

REPORT INFORMATION
  Report Type: 
  Country: None (occurrence: None)
  Receive Date: 20071008
  Receipt Date: 20070926
  Transmission Date: 20080405
  Serious: Yes (Hospitalization, Other)
  Sender: FDA-Public Use
  Company Number: FR-JNJFOC-20070905291

PATIENT
  Age: 43 Year
  Sex: Male

DRUGS (6)
  1. PREZISTA [Suspect]
     Indication: HIV INFECTION
     Route: 048
  2. MK0518 [Suspect]
     Indication: HIV INFECTION
     Route: 048
  3. SULFAMETHOXAZOLE AND TRIMETHOPRIM [Suspect]
     Indication: PROPHYLAXIS
     Route: 048
  4. RITONAVIR [Concomitant]
     Indication: HIV INFECTION
     Route: 048
  5. EMTRICITABINE/TENOFOVIR DISOPROXIL [Concomitant]
     Indication: HIV INFECTION
     Route: 065
  6. LOPINAVIR AND RITONAVIR [Concomitant]
     Indication: HIV INFECTION
     Route: 065

REACTIONS (3)
  - GENERAL PHYSICAL HEALTH DETERIORATION [None]
  - MOUTH ULCERATION [None]
  - PYREXIA [None]
